FAERS Safety Report 5297384-1 (Version None)
Quarter: 2007Q2

REPORT INFORMATION
  Report Type: 
  Country: None (occurrence: None)
  Receive Date: 20070410
  Receipt Date: 20070410
  Transmission Date: 20071010
  Serious: No
  Sender: FDA-Public Use
  Company Number: None

PATIENT

DRUGS (1)
  1. CATAPRES-TTS-3 [Suspect]
     Dosage: FILM, EXTENDED RELEASE

REACTIONS (2)
  - MEDICATION ERROR [None]
  - PROCEDURAL HYPOTENSION [None]
